FAERS Safety Report 9170580 (Version 1)
Quarter: 2013Q1

REPORT INFORMATION
  Report Type: Spontaneous
  Country: US (occurrence: None)
  Receive Date: 20130315
  Receipt Date: 20130315
  Transmission Date: 20140127
  Serious: Yes (Death)
  Sender: FDA-Public Use
  Company Number: None

PATIENT
  Age: 69 Year
  Sex: Female
  Weight: 74.84 kg

DRUGS (1)
  1. OXYFAST [Suspect]
     Indication: PULMONARY FIBROSIS
     Route: 048
     Dates: start: 20130115, end: 20130303

REACTIONS (3)
  - Seizure like phenomena [None]
  - Prescribed overdose [None]
  - Withdrawal syndrome [None]
